FAERS Safety Report 6444382-8 (Version None)
Quarter: 2009Q4

REPORT INFORMATION
  Report Type: 
  Country: None (occurrence: None)
  Receive Date: 20091117
  Receipt Date: 20091117
  Transmission Date: 20100525
  Serious: Yes (Hospitalization, Disabling)
  Sender: FDA-Public Use
  Company Number: None

PATIENT
  Age: 50 Year
  Sex: Female
  Weight: 76.6 kg

DRUGS (10)
  1. VALTREX [Suspect]
     Indication: ORAL HERPES
     Dosage: 1000 MG BID PO
     Route: 048
     Dates: start: 20091108, end: 20091112
  2. VALTREX [Suspect]
     Indication: TRACHEOBRONCHITIS
     Dosage: 1000 MG BID PO
     Route: 048
     Dates: start: 20091108, end: 20091112
  3. HALDOL [Concomitant]
  4. MULTI-VITAMIN [Concomitant]
  5. THIAMINE -VITAMIN B1- [Concomitant]
  6. FOLIC ACID -FOLVITE- [Concomitant]
  7. ALBUTEROL -PROVENTIL- [Concomitant]
  8. IPRATROPIUM -ATROVENT- [Concomitant]
  9. POTASSIUM CHLORIDE [Concomitant]
  10. DALTEPARIN -FRAGMIN- [Concomitant]

REACTIONS (13)
  - ABNORMAL BEHAVIOUR [None]
  - DECREASED EYE CONTACT [None]
  - DELUSION [None]
  - DISORIENTATION [None]
  - FLIGHT OF IDEAS [None]
  - HALLUCINATION, AUDITORY [None]
  - HALLUCINATION, VISUAL [None]
  - JUDGEMENT IMPAIRED [None]
  - MOOD ALTERED [None]
  - PSYCHOTIC DISORDER [None]
  - SPEECH DISORDER [None]
  - THINKING ABNORMAL [None]
  - UNEVALUABLE EVENT [None]
